FAERS Safety Report 11280681 (Version 2)
Quarter: 2015Q4

REPORT INFORMATION
  Report Type: Report from Study
  Country: FR (occurrence: FR)
  Receive Date: 20150717
  Receipt Date: 20151015
  Transmission Date: 20160304
  Serious: Yes (Hospitalization, Other)
  Sender: FDA-Public Use
  Company Number: PHHY2013FR081329

PATIENT
  Age: 69 Year
  Sex: Male
  Weight: 74 kg

DRUGS (4)
  1. PROGRAF [Suspect]
     Active Substance: TACROLIMUS\TACROLIMUS ANHYDROUS
     Indication: IMMUNOSUPPRESSION
     Dosage: 8 MG, UNK
     Route: 048
     Dates: start: 20121207, end: 20130625
  2. PROGRAF [Suspect]
     Active Substance: TACROLIMUS\TACROLIMUS ANHYDROUS
     Dosage: UNK
     Route: 048
     Dates: start: 20130723
  3. CERTICAN [Suspect]
     Active Substance: EVEROLIMUS
     Indication: RENAL TRANSPLANT
     Dosage: UNK
     Route: 065
     Dates: start: 20100826, end: 20101204
  4. CELLCEPT [Suspect]
     Active Substance: MYCOPHENOLATE MOFETIL\MYCOPHENOLATE MOFETIL HYDROCHLORIDE
     Indication: IMMUNOSUPPRESSION
     Dosage: 2 G, QD
     Route: 048
     Dates: start: 20100616

REACTIONS (19)
  - Blood bicarbonate increased [Unknown]
  - Monoclonal gammopathy [Recovering/Resolving]
  - Condition aggravated [Recovering/Resolving]
  - Renal impairment [Unknown]
  - Hepatosplenomegaly [Unknown]
  - Renal transplant failure [Not Recovered/Not Resolved]
  - Hyperkalaemia [Unknown]
  - Hypochromic anaemia [Unknown]
  - Nephropathy toxic [Unknown]
  - Dyspnoea exertional [Unknown]
  - Chronic kidney disease [Unknown]
  - Renal failure [Unknown]
  - Metabolic acidosis [Unknown]
  - Serum ferritin increased [Unknown]
  - Anaemia [Not Recovered/Not Resolved]
  - Asthenia [Not Recovered/Not Resolved]
  - Blood erythropoietin decreased [Unknown]
  - Chronic allograft nephropathy [Not Recovered/Not Resolved]
  - Microcytic anaemia [Unknown]

NARRATIVE: CASE EVENT DATE: 20130601
